FAERS Safety Report 5110685-2 (Version None)
Quarter: 2006Q3

REPORT INFORMATION
  Report Type: 
  Country: None (occurrence: None)
  Receive Date: 20060921
  Receipt Date: 20040310
  Transmission Date: 20061208
  Serious: Yes (Hospitalization)
  Sender: FDA-Public Use
  Company Number: FR-MERCK-0403USA01102

PATIENT
  Age: 74 Year
  Sex: Male

DRUGS (8)
  1. ZOCOR [Suspect]
     Route: 048
     Dates: start: 19900101, end: 20040127
  2. DIAMICRON [Suspect]
     Route: 048
     Dates: start: 19900101, end: 20040128
  3. HEMIGOXINE NATIVELLE [Concomitant]
     Indication: DIABETES MELLITUS
     Route: 048
     Dates: start: 19900101
  4. GLUCOPHAGE [Concomitant]
     Indication: DIABETES MELLITUS
     Route: 048
     Dates: start: 19900101
  5. ASPIRIN [Concomitant]
     Route: 048
     Dates: start: 19900101
  6. TRIATEC [Concomitant]
     Route: 048
     Dates: start: 19900101
  7. TILDIEM [Concomitant]
     Route: 048
     Dates: start: 19900101
  8. EURELIX [Concomitant]
     Route: 048
     Dates: start: 19900101

REACTIONS (1)
  - PLEURAL EFFUSION [None]
